FAERS Safety Report 4378593-2 (Version None)
Quarter: 2004Q2

REPORT INFORMATION
  Report Type: 
  Country: None (occurrence: None)
  Receive Date: 20040609
  Receipt Date: 20040603
  Transmission Date: 20050107
  Serious: Yes (Other)
  Sender: FDA-Public Use
  Company Number: 20030

PATIENT
  Sex: Female
  Weight: 52.1637 kg

DRUGS (7)
  1. NIASPAN [Suspect]
     Indication: BLOOD CHOLESTEROL INCREASED
     Dosage: 500 MG QHS PO
     Route: 048
  2. ASPIRIN [Concomitant]
  3. CENTRUM [Concomitant]
  4. DILTIAZEM [Concomitant]
  5. DIGITEK [Concomitant]
  6. LISINOPRIL [Concomitant]
  7. PRAVACHOL [Concomitant]

REACTIONS (6)
  - BLOOD PRESSURE DECREASED [None]
  - DIABETES MELLITUS [None]
  - FEELING HOT [None]
  - FLUSHING [None]
  - LOSS OF CONSCIOUSNESS [None]
  - SYNCOPE [None]
